FAERS Safety Report 9902249 (Version 3)
Quarter: 2015Q3

REPORT INFORMATION
  Report Type: Spontaneous
  Country: US (occurrence: US)
  Receive Date: 20140217
  Receipt Date: 20150810
  Transmission Date: 20151125
  Serious: No
  Sender: FDA-Public Use
  Company Number: US-GILEAD-2011-0043366

PATIENT
  Age: 77 Year
  Sex: Male

DRUGS (8)
  1. TYVASO [Concomitant]
     Active Substance: TREPROSTINIL
  2. LETAIRIS [Suspect]
     Active Substance: AMBRISENTAN
     Indication: PULMONARY HYPERTENSION
     Route: 048
     Dates: start: 20100825
  3. REVATIO [Concomitant]
     Active Substance: SILDENAFIL CITRATE
  4. LETAIRIS [Suspect]
     Active Substance: AMBRISENTAN
     Indication: CHRONIC OBSTRUCTIVE PULMONARY DISEASE
  5. LETAIRIS [Suspect]
     Active Substance: AMBRISENTAN
     Indication: HYPOXIA
  6. LETAIRIS [Suspect]
     Active Substance: AMBRISENTAN
     Indication: CARDIAC FAILURE
  7. LETAIRIS [Suspect]
     Active Substance: AMBRISENTAN
     Indication: SLEEP APNOEA SYNDROME
  8. LETAIRIS [Suspect]
     Active Substance: AMBRISENTAN
     Indication: AORTIC STENOSIS

REACTIONS (1)
  - Dizziness [Unknown]
